FAERS Safety Report 10511994 (Version 1)
Quarter: 2014Q4

REPORT INFORMATION
  Report Type: Spontaneous
  Country: US (occurrence: US)
  Receive Date: 20141010
  Receipt Date: 20141010
  Transmission Date: 20150528
  Serious: Yes (Hospitalization, Other)
  Sender: FDA-Public Use
  Company Number: US-009507513-1410USA003084

PATIENT
  Sex: Female

DRUGS (11)
  1. OXYCODONE [Suspect]
     Active Substance: OXYCODONE
  2. ARAVA [Concomitant]
     Active Substance: LEFLUNOMIDE
  3. ASPIRIN. [Concomitant]
     Active Substance: ASPIRIN
  4. ZOCOR [Suspect]
     Active Substance: SIMVASTATIN
     Route: 048
  5. PHENYTOIN. [Suspect]
     Active Substance: PHENYTOIN
  6. TRIMETHOPRIM. [Concomitant]
     Active Substance: TRIMETHOPRIM
  7. FOSAMAX [Suspect]
     Active Substance: ALENDRONATE SODIUM
     Route: 048
  8. CLOPIDOGREL [Suspect]
     Active Substance: CLOPIDOGREL BISULFATE
  9. METHOTREXATE [Suspect]
     Active Substance: METHOTREXATE
     Route: 048
  10. PREDNISONE. [Suspect]
     Active Substance: PREDNISONE
     Route: 048
  11. DOXYCYCLINE. [Concomitant]
     Active Substance: DOXYCYCLINE

REACTIONS (13)
  - Seizure [Unknown]
  - Ulcer [Unknown]
  - Sleep apnoea syndrome [Unknown]
  - Myocardial infarction [Unknown]
  - Dysuria [Unknown]
  - Genital burning sensation [Unknown]
  - Cardiac flutter [Unknown]
  - Drug hypersensitivity [Unknown]
  - Jaw disorder [Unknown]
  - Impaired driving ability [Unknown]
  - Large intestine polyp [Unknown]
  - Hypoaesthesia [Unknown]
  - Gastrooesophageal reflux disease [Unknown]
